FAERS Safety Report 8496118-7 (Version None)
Quarter: 2012Q3

REPORT INFORMATION
  Report Type: 
  Country: None (occurrence: None)
  Receive Date: 20120709
  Receipt Date: 20120628
  Transmission Date: 20120928
  Serious: Yes (Hospitalization, Other)
  Sender: FDA-Public Use
  Company Number: JP-VERTEX PHARMACEUTICALS INC.-AE-2012-004084

PATIENT
  Age: 68 Year
  Sex: Female

DRUGS (9)
  1. REBETOL [Concomitant]
     Route: 048
     Dates: start: 20120317, end: 20120321
  2. PEG-INTRON [Concomitant]
     Route: 058
     Dates: start: 20120208
  3. TELAVIC (TELAPREVIR) [Suspect]
     Route: 048
     Dates: start: 20120223, end: 20120324
  4. REBETOL [Concomitant]
     Route: 048
     Dates: end: 20120330
  5. TELAVIC (TELAPREVIR) [Suspect]
     Indication: HEPATITIS C
     Route: 048
     Dates: start: 20120208
  6. REBETOL [Concomitant]
     Route: 048
     Dates: start: 20120322, end: 20120324
  7. REBETOL [Concomitant]
     Route: 048
     Dates: start: 20120331, end: 20120419
  8. REBETOL [Concomitant]
     Route: 048
     Dates: start: 20120423
  9. REBETOL [Concomitant]
     Indication: HEPATITIS C
     Route: 048
     Dates: start: 20120208, end: 20120317

REACTIONS (3)
  - ANAEMIA [None]
  - DECREASED APPETITE [None]
  - DEPRESSIVE SYMPTOM [None]
